FAERS Safety Report 8285096-1 (Version None)
Quarter: 2012Q2

REPORT INFORMATION
  Report Type: 
  Country: None (occurrence: None)
  Receive Date: 20120413
  Receipt Date: 20110803
  Transmission Date: 20120825
  Serious: No
  Sender: FDA-Public Use
  Company Number: US-ASTRAZENECA-2011SE46884

PATIENT
  Age: 27953 Day
  Sex: Male

DRUGS (12)
  1. DILT-CD [Concomitant]
  2. DIPYRIDAMOLE [Concomitant]
  3. OMNARIS [Concomitant]
  4. SIMVASTATIN [Concomitant]
  5. LIDEX [Concomitant]
  6. OMEPRAZOLE [Suspect]
     Route: 048
     Dates: start: 20100504
  7. VESICARE [Concomitant]
  8. ZOCOR [Concomitant]
  9. MOBIC [Concomitant]
  10. ROBAXIN [Concomitant]
  11. HYDROCODONE BITARTRATE AND ACETAMINOPHEN [Concomitant]
     Indication: PAIN
  12. NEXIUM [Suspect]
     Route: 048
     Dates: start: 20100622

REACTIONS (4)
  - OSTEOARTHRITIS [None]
  - OESOPHAGEAL STENOSIS [None]
  - LUMBAR SPINAL STENOSIS [None]
  - SCIATICA [None]
